FAERS Safety Report 22030882 (Version 4)
Quarter: 2024Q4

REPORT INFORMATION
  Report Type: Spontaneous
  Country: US (occurrence: US)
  Receive Date: 20230223
  Receipt Date: 20241210
  Transmission Date: 20250115
  Serious: Yes (Other)
  Sender: PFIZER
  Company Number: US-PFIZER INC-PV202300017385

PATIENT
  Age: 70 Year
  Sex: Female

DRUGS (1)
  1. IBRANCE [Suspect]
     Active Substance: PALBOCICLIB
     Indication: Metastases to bone
     Dosage: TAKE 1 TABLET DAILY FOR 21 DAYS, THEN OFF FOR 7 FOR A 28 DAY CYCLE)
     Route: 048

REACTIONS (2)
  - Hysterectomy [Unknown]
  - Malaise [Unknown]

NARRATIVE: CASE EVENT DATE: 20221226
